FAERS Safety Report 6678069-3 (Version None)
Quarter: 2010Q2

REPORT INFORMATION
  Report Type: 
  Country: None (occurrence: None)
  Receive Date: 20100412
  Receipt Date: 20100407
  Transmission Date: 20101027
  Serious: Yes (Other)
  Sender: FDA-Public Use
  Company Number: PHHY2010SA21771

PATIENT
  Age: 35 Year
  Sex: Female

DRUGS (1)
  1. INTERFERON BETA-1B [Suspect]
     Indication: MULTIPLE SCLEROSIS
     Dosage: 8 MIU, QOD
     Route: 058

REACTIONS (7)
  - AUTOIMMUNE HEPATITIS [None]
  - FATIGUE [None]
  - HEPATIC FIBROSIS [None]
  - HEPATIC NECROSIS [None]
  - JAUNDICE [None]
  - OCULAR ICTERUS [None]
  - URINE COLOUR ABNORMAL [None]
